FAERS Safety Report 8331094-9 (Version None)
Quarter: 2012Q2

REPORT INFORMATION
  Report Type: 
  Country: None (occurrence: None)
  Receive Date: 20120502
  Receipt Date: 20120412
  Transmission Date: 20120825
  Serious: No
  Sender: FDA-Public Use
  Company Number: US-AMGEN-USASP2012023169

PATIENT
  Age: 67 Year
  Sex: Female

DRUGS (1)
  1. ENBREL [Suspect]
     Indication: RHEUMATOID ARTHRITIS
     Dosage: 50 MG, QWK
     Dates: start: 20120320

REACTIONS (5)
  - INJECTION SITE PAIN [None]
  - CHILLS [None]
  - NASOPHARYNGITIS [None]
  - NASAL CONGESTION [None]
  - PAIN [None]
